FAERS Safety Report 7524763-1 (Version None)
Quarter: 2011Q2

REPORT INFORMATION
  Report Type: 
  Country: None (occurrence: None)
  Receive Date: 20110606
  Receipt Date: 20110111
  Transmission Date: 20111010
  Serious: Yes (Hospitalization, Other)
  Sender: FDA-Public Use
  Company Number: US-BAYER-201030416NA

PATIENT
  Age: 29 Year
  Sex: Female
  Weight: 71.655 kg

DRUGS (9)
  1. YASMIN [Suspect]
     Indication: PREMENSTRUAL SYNDROME
     Dosage: UNK UNK, UNK
     Route: 048
     Dates: start: 19990101, end: 20040101
  2. ALBUTEROL SULFATE AUTOHALER [Concomitant]
  3. YASMIN [Suspect]
  4. NEXIUM [Concomitant]
  5. AMOXICILLIN [Concomitant]
  6. PROPOXYPHENE NAPSYLATE W/ ACETAMINOPHEN [Concomitant]
  7. IBUPROFEN [Concomitant]
     Dosage: UNK
     Dates: start: 20040101
  8. ORTHO TRI-CYCLEN [Concomitant]
  9. DIFLUCAN [Concomitant]

REACTIONS (9)
  - GASTROOESOPHAGEAL REFLUX DISEASE [None]
  - IRRITABLE BOWEL SYNDROME [None]
  - VOMITING [None]
  - GASTRITIS [None]
  - CHOLELITHIASIS [None]
  - GALLBLADDER INJURY [None]
  - CHOLECYSTITIS CHRONIC [None]
  - CHOLESTEROSIS [None]
  - GASTRIC DISORDER [None]
